FAERS Safety Report 4457979-1 (Version None)
Quarter: 2004Q3

REPORT INFORMATION
  Report Type: 
  Country: None (occurrence: None)
  Receive Date: 20040917
  Receipt Date: 20040503
  Transmission Date: 20050211
  Serious: Yes (Hospitalization)
  Sender: FDA-Public Use
  Company Number: US-JNJFOC-20040501095

PATIENT
  Age: 23 Year
  Sex: Male

DRUGS (3)
  1. TOPAMAX [Suspect]
     Indication: BIPOLAR DISORDER
     Dosage: , IN 1 DAY, ORAL
     Route: 048
  2. LITHIUM CARBONATE [Concomitant]
  3. RISPERDAL CONSTA (RISPERIDONE) INJECTION [Concomitant]

REACTIONS (1)
  - MANIA [None]
